FAERS Safety Report 8473502-9 (Version None)
Quarter: 2012Q2

REPORT INFORMATION
  Report Type: 
  Country: None (occurrence: None)
  Receive Date: 20120625
  Receipt Date: 20120625
  Transmission Date: 20120825
  Serious: Yes (Other)
  Sender: FDA-Public Use
  Company Number: None

PATIENT
  Sex: Female

DRUGS (2)
  1. OXYCODONE AND ACETAMINOPHEN [Suspect]
     Indication: BACK PAIN
     Dosage: 5/325MG ONCE A DAY PO
     Route: 048
  2. OXYCODONE AND ACETAMINOPHEN [Suspect]
     Indication: BACK PAIN
     Dosage: 5/325MG ONCE A DAY PO ONCE
     Route: 048

REACTIONS (2)
  - PRODUCT QUALITY ISSUE [None]
  - DIZZINESS [None]
